FAERS Safety Report 18587873 (Version 3)
Quarter: 2021Q2

REPORT INFORMATION
  Report Type: Report from Study
  Country: BR (occurrence: BR)
  Receive Date: 20201207
  Receipt Date: 20210401
  Transmission Date: 20210717
  Serious: Yes (Life-Threatening, Other)
  Sender: FDA-Public Use
  Company Number: NVSC2020BR323594

PATIENT
  Age: 70 Year
  Sex: Male

DRUGS (6)
  1. COSENTYX [Suspect]
     Active Substance: SECUKINUMAB
     Dosage: 150 MG
     Route: 065
     Dates: start: 20201106
  2. INSULIN [Concomitant]
     Active Substance: INSULIN NOS
     Indication: DIABETES MELLITUS
     Dosage: UNK
     Route: 065
  3. COSENTYX [Suspect]
     Active Substance: SECUKINUMAB
     Dosage: 150 MG
     Route: 065
     Dates: start: 20201030
  4. BENZETACIL [BENZATHINE BENZYLPENICILLIN] [Suspect]
     Active Substance: PENICILLIN G BENZATHINE
     Indication: GENITAL HERPES
     Dosage: UNK
     Route: 065
  5. ZOVIRAX [Suspect]
     Active Substance: ACYCLOVIR
     Indication: GENITAL HERPES
     Dosage: UNK
     Route: 065
  6. COSENTYX [Suspect]
     Active Substance: SECUKINUMAB
     Indication: PSORIATIC ARTHROPATHY
     Dosage: 150 MG
     Route: 065
     Dates: start: 20201009

REACTIONS (20)
  - Prescription drug used without a prescription [Recovering/Resolving]
  - Product dose omission issue [Recovering/Resolving]
  - Dysstasia [Unknown]
  - Stress [Unknown]
  - Gait inability [Recovering/Resolving]
  - Pain in extremity [Recovering/Resolving]
  - Injection site pain [Unknown]
  - Genital injury [Recovered/Resolved]
  - Burns third degree [Recovering/Resolving]
  - Genital pain [Recovered/Resolved]
  - Emotional disorder [Unknown]
  - Arthralgia [Recovered/Resolved]
  - Pain [Recovering/Resolving]
  - Genital burning sensation [Recovered/Resolved]
  - Anxiety [Unknown]
  - Paraesthesia [Recovering/Resolving]
  - Decreased immune responsiveness [Unknown]
  - Pruritus [Recovering/Resolving]
  - Genital herpes [Recovered/Resolved]
  - Drug ineffective [Recovering/Resolving]

NARRATIVE: CASE EVENT DATE: 20201030
